FAERS Safety Report 4910513-1 (Version None)
Quarter: 2006Q1

REPORT INFORMATION
  Report Type: 
  Country: None (occurrence: None)
  Receive Date: 20060209
  Receipt Date: 20060127
  Transmission Date: 20060701
  Serious: Yes (Hospitalization, Other)
  Sender: FDA-Public Use
  Company Number: SUS1-2005-00808

PATIENT
  Age: 19 Year
  Sex: Male

DRUGS (5)
  1. PENTASA [Suspect]
     Indication: COLITIS ULCERATIVE
     Dosage: SEE IMAGE
     Route: 048
     Dates: start: 20050906, end: 20050911
  2. PENTASA [Suspect]
     Indication: COLITIS ULCERATIVE
     Dosage: SEE IMAGE
     Route: 048
     Dates: start: 20050912, end: 20050929
  3. PENTASA [Suspect]
     Indication: COLITIS ULCERATIVE
     Dosage: 1000 MG, RECTAL
     Route: 054
     Dates: start: 20050920, end: 20050929
  4. RANITIDINE HYDROCHLORIDE [Concomitant]
  5. KETOTIFEN FUMARATE (KETOTIFEN FUMARATE) [Concomitant]

REACTIONS (1)
  - PNEUMONIA [None]
